FAERS Safety Report 4421022-0 (Version None)
Quarter: 2004Q3

REPORT INFORMATION
  Report Type: 
  Country: None (occurrence: None)
  Receive Date: 20040809
  Receipt Date: 20040729
  Transmission Date: 20050211
  Serious: Yes (Hospitalization)
  Sender: FDA-Public Use
  Company Number: GB-GLAXOSMITHKLINE-B0341041A

PATIENT
  Age: 82 Year
  Sex: Female

DRUGS (5)
  1. CEFUROXIME SODIUM [Suspect]
     Indication: SEPSIS
     Dosage: 750MG PER DAY
     Route: 042
     Dates: start: 20040706, end: 20040709
  2. CEFOTAXIME SODIUM [Concomitant]
     Indication: SEPSIS
     Dosage: 500MG PER DAY
     Route: 042
     Dates: start: 20040702, end: 20040705
  3. CLARITHROMYCIN [Concomitant]
     Indication: SEPSIS
     Dosage: 500MG PER DAY
     Route: 042
     Dates: start: 20040704, end: 20040705
  4. DALTEPARIN [Concomitant]
     Indication: DEEP VENOUS THROMBOSIS PROPHYLAXIS
     Dosage: 2500IU PER DAY
     Route: 058
     Dates: start: 20040705, end: 20040707
  5. CEPHALEXIN [Concomitant]
     Dosage: 250MG PER DAY
     Route: 048
     Dates: start: 20040704, end: 20040712

REACTIONS (4)
  - ERYTHEMA [None]
  - MOUTH ULCERATION [None]
  - SCAB [None]
  - STEVENS-JOHNSON SYNDROME [None]
